FAERS Safety Report 5363305-6 (Version None)
Quarter: 2007Q2

REPORT INFORMATION
  Report Type: 
  Country: None (occurrence: None)
  Receive Date: 20070620
  Receipt Date: 20070614
  Transmission Date: 20071010
  Serious: No
  Sender: FDA-Public Use
  Company Number: BE-BAXTER-2007BH005463

PATIENT
  Age: 61 Year
  Sex: Male

DRUGS (8)
  1. EXTRANEAL [Suspect]
     Indication: PERITONEAL DIALYSIS
     Dosage: DOSE UNIT:UNKNOWN
     Route: 033
  2. DIANEAL [Suspect]
     Indication: PERITONEAL DIALYSIS
     Dosage: DOSE UNIT:UNKNOWN
     Route: 033
  3. MYFORTIC [Concomitant]
  4. PROGRAF [Concomitant]
  5. MEDROL [Concomitant]
  6. LEVOTHYROXINE SODIUM [Concomitant]
  7. SINTROM [Concomitant]
  8. LOGASTRIC [Concomitant]

REACTIONS (4)
  - ASCITES [None]
  - INTESTINAL OBSTRUCTION [None]
  - MALNUTRITION [None]
  - SCLEROSING ENCAPSULATING PERITONITIS [None]
